FAERS Safety Report 10516721 (Version 1)
Quarter: 2014Q4

REPORT INFORMATION
  Report Type: Spontaneous
  Country: US (occurrence: None)
  Receive Date: 20141003
  Receipt Date: 20141003
  Transmission Date: 20150528
  Serious: Yes (Life-Threatening, Hospitalization)
  Sender: FDA-Public Use
  Company Number: 1356033

PATIENT
  Sex: Female

DRUGS (2)
  1. RIBAVIRIN (RIBAVIRIN) [Suspect]
     Active Substance: RIBAVIRIN
     Indication: HEPATITIS C
  2. PEGASYS [Suspect]
     Active Substance: PEGINTERFERON ALFA-2A
     Indication: HEPATITIS C
     Dosage: (180 UG,  1 IN 1 WK), UNKNOWN
     Dates: start: 2009, end: 2009

REACTIONS (13)
  - Weight decreased [None]
  - Hepatic cirrhosis [None]
  - Headache [None]
  - Haemangioma [None]
  - Skin mass [None]
  - Dry skin [None]
  - Pallor [None]
  - Dyschezia [None]
  - Feeling cold [None]
  - Skin wrinkling [None]
  - Back pain [None]
  - Aphagia [None]
  - Hunger [None]
